FAERS Safety Report 24942638 (Version 2)
Quarter: 2025Q1

REPORT INFORMATION
  Report Type: Spontaneous
  Country: US (occurrence: US)
  Receive Date: 20250207
  Receipt Date: 20250222
  Transmission Date: 20250409
  Serious: No
  Sender: SANOFI AVENTIS
  Company Number: US-SA-2025SA037226

PATIENT
  Age: 42 Year
  Sex: Male

DRUGS (31)
  1. REZUROCK [Suspect]
     Active Substance: BELUMOSUDIL
     Indication: Graft versus host disease
     Dosage: 200 MG, BID
     Route: 048
  2. REZUROCK [Suspect]
     Active Substance: BELUMOSUDIL
     Dosage: 200 MG, QD
     Route: 048
  3. DOXYCYCLINE [Concomitant]
     Active Substance: DOXYCYCLINE
  4. VENLAFAXINE [Concomitant]
     Active Substance: VENLAFAXINE HYDROCHLORIDE
  5. VITAMIN D [Concomitant]
     Active Substance: VITAMIN D NOS
  6. BUDESONIDE [Concomitant]
     Active Substance: BUDESONIDE
  7. SPIRONOLACTONE [Concomitant]
     Active Substance: SPIRONOLACTONE
  8. BELBUCA [Concomitant]
     Active Substance: BUPRENORPHINE HYDROCHLORIDE
  9. PANTOPRAZOLE [Concomitant]
     Active Substance: PANTOPRAZOLE
  10. FUROSEMIDE [Concomitant]
     Active Substance: FUROSEMIDE
  11. FIBER THERAPY (CALCIUM POLYCARBOPHIL) [Concomitant]
     Active Substance: CALCIUM POLYCARBOPHIL
  12. LEVEMIR [Concomitant]
     Active Substance: INSULIN DETEMIR
  13. NORFLEX [Concomitant]
     Active Substance: ORPHENADRINE CITRATE
  14. MUPIROCIN [Concomitant]
     Active Substance: MUPIROCIN
  15. BACTRIM [Concomitant]
     Active Substance: SULFAMETHOXAZOLE\TRIMETHOPRIM
  16. RESTASIS [Concomitant]
     Active Substance: CYCLOSPORINE
  17. MAGONATE [Concomitant]
  18. NALOXONE [Concomitant]
     Active Substance: NALOXONE
  19. LABETALOL [Concomitant]
     Active Substance: LABETALOL
  20. EYSUVIS [Concomitant]
     Active Substance: LOTEPREDNOL ETABONATE
  21. DEXAMETHASONE [Concomitant]
     Active Substance: DEXAMETHASONE
  22. LYRICA [Concomitant]
     Active Substance: PREGABALIN
  23. DIFLUCAN [Concomitant]
     Active Substance: FLUCONAZOLE
  24. TACROLIMUS [Concomitant]
     Active Substance: TACROLIMUS
  25. PREDNISOLONE ACETATE [Concomitant]
     Active Substance: PREDNISOLONE ACETATE
  26. COLACE [Concomitant]
     Active Substance: DOCUSATE SODIUM
  27. URSODIOL [Concomitant]
     Active Substance: URSODIOL
  28. HYDROCORTISONE [Concomitant]
     Active Substance: HYDROCORTISONE
  29. CALCIUM [Concomitant]
     Active Substance: CALCIUM
  30. VORICONAZOLE [Concomitant]
     Active Substance: VORICONAZOLE
  31. ACYCLOVIR [Concomitant]
     Active Substance: ACYCLOVIR

REACTIONS (1)
  - Inappropriate schedule of product administration [Unknown]
